FAERS Safety Report 4534351-7 (Version None)
Quarter: 2004Q4

REPORT INFORMATION
  Report Type: 
  Country: None (occurrence: None)
  Receive Date: 20041221
  Receipt Date: 20041221
  Transmission Date: 20050328
  Serious: No
  Sender: FDA-Public Use
  Company Number: None

PATIENT
  Age: 72 Year
  Sex: Male
  Weight: 97.977 kg

DRUGS (2)
  1. AMIODARONE HCL [Suspect]
     Indication: ATRIAL FIBRILLATION
     Dosage: 200 MG PO BID
     Route: 048
     Dates: start: 20041210
  2. COUMADIN [Suspect]
     Indication: ATRIAL FIBRILLATION
     Dosage: 7.5 MG PO OD
     Route: 048
     Dates: start: 20040401

REACTIONS (2)
  - ATRIAL FIBRILLATION [None]
  - INTERNATIONAL NORMALISED RATIO INCREASED [None]
